FAERS Safety Report 18330046 (Version 1)
Quarter: 2020Q3

REPORT INFORMATION
  Report Type: Spontaneous
  Country: US (occurrence: US)
  Receive Date: 20200930
  Receipt Date: 20200930
  Transmission Date: 20201103
  Serious: Yes (Hospitalization)
  Sender: FDA-Public Use
  Company Number: None

PATIENT
  Age: 11 Year
  Sex: Female

DRUGS (10)
  1. AMBRISENTAN [Suspect]
     Active Substance: AMBRISENTAN
     Indication: PULMONARY HYPERTENSION
  2. GABAPENTIN. [Concomitant]
     Active Substance: GABAPENTIN
  3. TADALAFIL. [Concomitant]
     Active Substance: TADALAFIL
  4. DIAZEPAM. [Concomitant]
     Active Substance: DIAZEPAM
  5. LASIX [Concomitant]
     Active Substance: FUROSEMIDE
  6. GUANFACINE. [Concomitant]
     Active Substance: GUANFACINE
  7. MIRALAX [Concomitant]
     Active Substance: POLYETHYLENE GLYCOL 3350
  8. REMODULIN [Concomitant]
     Active Substance: TREPROSTINIL
  9. ONDANSETRON [Concomitant]
     Active Substance: ONDANSETRON
  10. POTASSIUM CHLORIDE. [Concomitant]
     Active Substance: POTASSIUM CHLORIDE

REACTIONS (1)
  - Sepsis [None]

NARRATIVE: CASE EVENT DATE: 20200923
